FAERS Safety Report 24621627 (Version 2)
Quarter: 2025Q1

REPORT INFORMATION
  Report Type: Spontaneous
  Country: US (occurrence: US)
  Receive Date: 20241114
  Receipt Date: 20250203
  Transmission Date: 20250408
  Serious: No
  Sender: SANOFI AVENTIS
  Company Number: US-SA-2024SA329864

PATIENT
  Age: 66 Year
  Sex: Male
  Weight: 81.6 kg

DRUGS (2)
  1. DUPIXENT [Suspect]
     Active Substance: DUPILUMAB
     Dosage: 300 MG, QW
     Route: 058
     Dates: start: 20241030
  2. OMEPRAZOLE [Concomitant]
     Active Substance: OMEPRAZOLE

REACTIONS (9)
  - Food intolerance [Unknown]
  - Condition aggravated [Unknown]
  - Peripheral coldness [Unknown]
  - Weight abnormal [Unknown]
  - Eating disorder [Unknown]
  - Dry skin [Unknown]
  - Myalgia [Unknown]
  - Arthralgia [Unknown]
  - Dry eye [Unknown]
